FAERS Safety Report 5102885-2 (Version None)
Quarter: 2006Q3

REPORT INFORMATION
  Report Type: 
  Country: None (occurrence: None)
  Receive Date: 20060908
  Receipt Date: 20060830
  Transmission Date: 20061208
  Serious: Yes (Other)
  Sender: FDA-Public Use
  Company Number: HQWYE288416AUG04

PATIENT
  Age: 63 Year
  Sex: Male
  Weight: 92.1 kg

DRUGS (2)
  1. MYLOTARG [Suspect]
     Indication: ACUTE MYELOID LEUKAEMIA
     Dosage: 8.6 MG 1X PER 1 DAY, INTRAVENOUS; SEE IMAGE
     Route: 042
     Dates: start: 20040722, end: 20040722
  2. MYLOTARG [Suspect]
     Indication: ACUTE MYELOID LEUKAEMIA
     Dosage: 8.6 MG 1X PER 1 DAY, INTRAVENOUS; SEE IMAGE
     Route: 042
     Dates: start: 20040729, end: 20040729

REACTIONS (1)
  - OEDEMA [None]
